FAERS Safety Report 12451575 (Version 2)
Quarter: 2016Q2

REPORT INFORMATION
  Report Type: Report from Study
  Country: US (occurrence: US)
  Receive Date: 20160609
  Receipt Date: 20160615
  Transmission Date: 20160815
  Serious: Yes (Hospitalization)
  Sender: FDA-Public Use
  Company Number: US-BIOGEN-2016BI00248915

PATIENT
  Sex: Female

DRUGS (1)
  1. TYSABRI [Suspect]
     Active Substance: NATALIZUMAB
     Indication: MULTIPLE SCLEROSIS
     Route: 065
     Dates: start: 20151201

REACTIONS (7)
  - Malaise [Unknown]
  - Drug ineffective [Recovered/Resolved with Sequelae]
  - Hemiparesis [Unknown]
  - Gait disturbance [Unknown]
  - Muscle spasms [Recovered/Resolved with Sequelae]
  - Drug dose omission [Recovered/Resolved]
  - Asthenia [Recovered/Resolved with Sequelae]
